FAERS Safety Report 9970784 (Version 1)
Quarter: 2014Q1

REPORT INFORMATION
  Report Type: Spontaneous
  Country: US (occurrence: None)
  Receive Date: 20140127
  Receipt Date: 20140127
  Transmission Date: 20141002
  Serious: Yes (Other)
  Sender: FDA-Public Use
  Company Number: 1285980

PATIENT
  Sex: Male

DRUGS (4)
  1. RITUXAN [Suspect]
     Indication: B-CELL LYMPHOMA
     Dosage: IN (NOT OTHERWISE SPECIFIED)
     Route: 042
  2. PREDNISONE (PREDNISONE) [Concomitant]
  3. BENADRYL (DIPHENHYDRAMINE HYDROCHLORIDE) [Suspect]
  4. ANTINAUSEA SUPERTTES (PENTOBARBITAL SODIUM PYRILAMINE MALEATE) [Concomitant]

REACTIONS (4)
  - Vomiting [None]
  - Anaphylactic reaction [None]
  - B-cell lymphoma [None]
  - No therapeutic response [None]
